FAERS Safety Report 24996071 (Version 1)
Quarter: 2025Q1

REPORT INFORMATION
  Report Type: Spontaneous
  Country: US (occurrence: US)
  Receive Date: 20250221
  Receipt Date: 20250221
  Transmission Date: 20250409
  Serious: No
  Sender: CATALYST PHARMA
  Company Number: US-CATALYST PHARMACEUTICALS-US-CATA-24-01640

PATIENT
  Age: 7 Year
  Sex: Male
  Weight: 29.932 kg

DRUGS (4)
  1. AGAMREE [Suspect]
     Active Substance: VAMOROLONE
     Indication: Duchenne muscular dystrophy
     Dosage: 4 ML ONCE DAILY
     Route: 048
     Dates: start: 20240822, end: 20241216
  2. AGAMREE [Suspect]
     Active Substance: VAMOROLONE
     Dosage: 4 ML ONCE DAILY
     Route: 048
     Dates: start: 20241218
  3. HYDROCORTISONE [Concomitant]
     Active Substance: HYDROCORTISONE
     Indication: Stress
     Route: 048
  4. TYLENOL [Concomitant]
     Active Substance: ACETAMINOPHEN
     Indication: Pain in extremity
     Route: 065

REACTIONS (2)
  - Gastroenteritis viral [Recovered/Resolved]
  - Product dose omission issue [Unknown]

NARRATIVE: CASE EVENT DATE: 20241216
